FAERS Safety Report 5245860-X (Version None)
Quarter: 2007Q1

REPORT INFORMATION
  Report Type: 
  Country: None (occurrence: None)
  Receive Date: 20070216
  Receipt Date: 20070205
  Transmission Date: 20070707
  Serious: Yes (Hospitalization)
  Sender: FDA-Public Use
  Company Number: E3810-00049-CLI-US

PATIENT
  Age: 65 Year
  Sex: Female
  Weight: 64 kg

DRUGS (28)
  1. RABEPRAZOLE SODIUM [Suspect]
     Indication: DYSPEPSIA
     Dosage: 10 MG, 1 IN 1 D, ORAL
     Route: 048
     Dates: start: 20060508, end: 20060601
  2. DIAZEPAM [Concomitant]
  3. ZOLOFT [Concomitant]
  4. PRIMIDONE [Concomitant]
  5. LAMICTAL [Concomitant]
  6. FUROSEMIDE [Concomitant]
  7. PROTONIX [Concomitant]
  8. NORVASC [Concomitant]
  9. COZAAR [Concomitant]
  10. POTASSIUM (POTASSIUM) [Concomitant]
  11. FOSAMAX [Concomitant]
  12. BUSPIRONE HCL (BUSPIRONE HYDROCHLORIDE) [Concomitant]
  13. LESCOL XL [Concomitant]
  14. NEXIUM [Concomitant]
  15. CALCIUM WITH VITAMIN D (CALCIUM WITH VITAMIN D) [Concomitant]
  16. GAVISCON [Concomitant]
  17. MACRODANTIN [Concomitant]
  18. BUMEX [Concomitant]
  19. LOPRESSOR [Concomitant]
  20. LEVAQUIN [Concomitant]
  21. NTG (GLYCERYL TRINITRATE) [Concomitant]
  22. SEROQUEL [Concomitant]
  23. ZAROXOLYN [Concomitant]
  24. BUMEX [Concomitant]
  25. METOPROLOL TARTRATE [Concomitant]
  26. ATIVAN [Concomitant]
  27. ASPIRIN [Concomitant]
  28. SENNA (SENNA) [Concomitant]

REACTIONS (4)
  - CHEST PAIN [None]
  - CORONARY ARTERY OCCLUSION [None]
  - DISCOMFORT [None]
  - DRUG INEFFECTIVE [None]
